FAERS Safety Report 25016900 (Version 1)
Quarter: 2025Q1

REPORT INFORMATION
  Report Type: Spontaneous
  Country: JP (occurrence: JP)
  Receive Date: 20250227
  Receipt Date: 20250227
  Transmission Date: 20250409
  Serious: Yes (Disabling)
  Sender: REGENERON
  Company Number: JP-BAYER-2025A026384

PATIENT
  Age: 51 Year
  Sex: Male

DRUGS (2)
  1. EYLEA [Suspect]
     Active Substance: AFLIBERCEPT
     Indication: Retinal vein occlusion
     Dosage: UNK, RIGHT EYE, SOLUTION FOR INJECTION IN PRE-FILLED SYRINGE, 40MG/ML
     Route: 031
     Dates: start: 20250206, end: 20250206
  2. EYLEA [Suspect]
     Active Substance: AFLIBERCEPT
     Indication: Oedema

REACTIONS (4)
  - Vascular occlusion [Recovered/Resolved]
  - Non-infectious endophthalmitis [Recovered/Resolved]
  - Vitreous opacities [Recovering/Resolving]
  - Haemorrhage [Recovering/Resolving]

NARRATIVE: CASE EVENT DATE: 20250207
